FAERS Safety Report 4285637-5 (Version None)
Quarter: 2004Q1

REPORT INFORMATION
  Report Type: 
  Country: None (occurrence: None)
  Receive Date: 20040203
  Receipt Date: 20040122
  Transmission Date: 20041129
  Serious: Yes (Life-Threatening, Hospitalization)
  Sender: FDA-Public Use
  Company Number: PL-JNJFOC-20040104364

PATIENT
  Age: 29 Year
  Sex: Female
  Weight: 54 kg

DRUGS (4)
  1. REMICADE [Suspect]
     Indication: RHEUMATOID ARTHRITIS
     Dosage: 200 MG , 1 IN 1 DAY, INTRAVENOUS
     Route: 042
     Dates: start: 20031231, end: 20031231
  2. REMICADE [Suspect]
     Indication: RHEUMATOID ARTHRITIS
     Dosage: 200 MG , 1 IN 1 DAY, INTRAVENOUS
     Route: 042
     Dates: start: 20040116, end: 20040116
  3. HYDROCORTISONE [Concomitant]
  4. CETRIZINE (CETIRIZINE) [Concomitant]

REACTIONS (2)
  - ANAPHYLACTIC REACTION [None]
  - BLOOD PRESSURE INCREASED [None]
